FAERS Safety Report 7217436-6 (Version None)
Quarter: 2011Q1

REPORT INFORMATION
  Report Type: 
  Country: None (occurrence: None)
  Receive Date: 20110110
  Receipt Date: 20110105
  Transmission Date: 20110831
  Serious: Yes (Death, Life-Threatening, Hospitalization, Other)
  Sender: FDA-Public Use
  Company Number: PHHO2010US19064

PATIENT
  Sex: Female

DRUGS (2)
  1. STI571/CGP57148B [Suspect]
     Indication: PULMONARY ARTERIAL HYPERTENSION
     Dosage: 400MG
     Route: 048
     Dates: start: 20100810, end: 20101212
  2. FLOLAN [Concomitant]

REACTIONS (17)
  - RIGHT ATRIAL DILATATION [None]
  - SMALL INTESTINAL OBSTRUCTION [None]
  - CARDIAC TAMPONADE [None]
  - PERICARDIAL EFFUSION [None]
  - RIGHT VENTRICULAR FAILURE [None]
  - BILE DUCT STONE [None]
  - ASCITES [None]
  - PULMONARY ARTERIAL HYPERTENSION [None]
  - PERICARDIAL DRAINAGE [None]
  - DISEASE PROGRESSION [None]
  - DILATATION VENTRICULAR [None]
  - THROMBOCYTOPENIA [None]
  - GENERALISED OEDEMA [None]
  - CARDIO-RESPIRATORY ARREST [None]
  - GASTROINTESTINAL NECROSIS [None]
  - BRONCHITIS [None]
  - ABDOMINAL PAIN [None]
